FAERS Safety Report 4928657-7 (Version None)
Quarter: 2006Q1

REPORT INFORMATION
  Report Type: 
  Country: None (occurrence: None)
  Receive Date: 20060227
  Receipt Date: 20060227
  Transmission Date: 20060701
  Serious: No
  Sender: FDA-Public Use
  Company Number: None

PATIENT

DRUGS (1)
  1. VICKS NYQUIL    MULTI-SYMPTOM COLD/FLU RELIEF     P+G [Suspect]

REACTIONS (1)
  - MEDICATION ERROR [None]
